FAERS Safety Report 16957195 (Version 1)
Quarter: 2019Q4

REPORT INFORMATION
  Report Type: Spontaneous
  Country: US (occurrence: US)
  Receive Date: 20191023
  Receipt Date: 20191023
  Transmission Date: 20200122
  Serious: Yes (Other)
  Sender: FDA-Public Use
  Company Number: None

PATIENT
  Age: 37 Year
  Sex: Female

DRUGS (2)
  1. BUPRENORPHINE/NALAXONE FILMS [Suspect]
     Active Substance: BUPRENORPHINE\NALOXONE
     Indication: DRUG DEPENDENCE
     Route: 048
     Dates: start: 20190401, end: 20191023
  2. BUPRENORPHINE NALOXONE 8-NG TABLETS [Suspect]
     Active Substance: BUPRENORPHINE\NALOXONE
     Dates: start: 20190304, end: 20190401

REACTIONS (2)
  - Drug withdrawal syndrome [None]
  - Product substitution issue [None]

NARRATIVE: CASE EVENT DATE: 20191022
